FAERS Safety Report 20168130 (Version 1)
Quarter: 2021Q4

REPORT INFORMATION
  Report Type: Spontaneous
  Country: US (occurrence: US)
  Receive Date: 20211210
  Receipt Date: 20211210
  Transmission Date: 20220303
  Serious: Yes (Other)
  Sender: FDA-Public Use
  Company Number: US-SA-SAC20211207001070

PATIENT
  Age: 58 Year
  Sex: Male

DRUGS (2)
  1. ZANTAC [Suspect]
     Active Substance: RANITIDINE HYDROCHLORIDE
     Indication: Abdominal discomfort
     Dosage: 75MG, FREQUENCY: OCCASIONAL
     Dates: start: 201105
  2. ZANTAC [Suspect]
     Active Substance: RANITIDINE HYDROCHLORIDE
     Indication: Dyspepsia
     Dosage: 150MG, FREQUENCY: OCCASIONAL
     Dates: end: 201803

REACTIONS (1)
  - Bladder cancer stage II [Recovering/Resolving]

NARRATIVE: CASE EVENT DATE: 20180801
